FAERS Safety Report 25917602 (Version 1)
Quarter: 2025Q4

REPORT INFORMATION
  Report Type: Spontaneous
  Country: EU (occurrence: EU)
  Receive Date: 20251014
  Receipt Date: 20251014
  Transmission Date: 20260117
  Serious: Yes (Other)
  Sender: ACCORD
  Company Number: None

PATIENT
  Age: 51 Year
  Sex: Female

DRUGS (3)
  1. CARBOPLATIN [Suspect]
     Active Substance: CARBOPLATIN
     Indication: Triple negative breast cancer
  2. PACLITAXEL [Suspect]
     Active Substance: PACLITAXEL
     Indication: Triple negative breast cancer
  3. PEMBROLIZUMAB [Suspect]
     Active Substance: PEMBROLIZUMAB
     Indication: Triple negative breast cancer
     Dosage: STRENGTH:  25 MG/ML, CONCENTRATE FOR SOLUTION FOR INFUSION
     Dates: start: 20230317

REACTIONS (6)
  - Nausea [Recovering/Resolving]
  - Rash pruritic [Recovering/Resolving]
  - Myalgia [Recovered/Resolved]
  - Gastrooesophageal reflux disease [Recovering/Resolving]
  - Dysaesthesia [Recovering/Resolving]
  - Epistaxis [Recovering/Resolving]

NARRATIVE: CASE EVENT DATE: 20230301
